FAERS Safety Report 15448957 (Version 1)
Quarter: 2018Q3

REPORT INFORMATION
  Report Type: Spontaneous
  Country: US (occurrence: US)
  Receive Date: 20180926
  Receipt Date: 20180926
  Transmission Date: 20181010
  Serious: Yes (Disabling)
  Sender: FDA-Public Use
  Company Number: None

PATIENT
  Age: 60 Year
  Sex: Female
  Weight: 72.57 kg

DRUGS (4)
  1. VITAMINS [Concomitant]
     Active Substance: VITAMINS
  2. EVERYTHING T HELP DETOX [Concomitant]
  3. DOTAREM [Suspect]
     Active Substance: GADOTERATE MEGLUMINE
  4. GADOLINIUM [Suspect]
     Active Substance: GADOLINIUM

REACTIONS (7)
  - Malaise [None]
  - Gait inability [None]
  - Multi-organ disorder [None]
  - Feeling abnormal [None]
  - Burning sensation [None]
  - Loss of personal independence in daily activities [None]
  - Liver disorder [None]

NARRATIVE: CASE EVENT DATE: 20180226
